FAERS Safety Report 25147590 (Version 2)
Quarter: 2025Q2

REPORT INFORMATION
  Report Type: Spontaneous
  Country: IT (occurrence: IT)
  Receive Date: 20250402
  Receipt Date: 20250501
  Transmission Date: 20250717
  Serious: Yes (Hospitalization, Other)
  Sender: NOVO NORDISK
  Company Number: IT-NOVOPROD-1396673

PATIENT
  Age: 49 Year
  Sex: Male
  Weight: 90 kg

DRUGS (4)
  1. WEGOVY [Suspect]
     Active Substance: SEMAGLUTIDE
     Dates: end: 20250228
  2. WEGOVY [Suspect]
     Active Substance: SEMAGLUTIDE
     Indication: Product used for unknown indication
     Dates: start: 20241005
  3. WEGOVY [Suspect]
     Active Substance: SEMAGLUTIDE
  4. WEGOVY [Suspect]
     Active Substance: SEMAGLUTIDE
     Dates: start: 20250307

REACTIONS (3)
  - Nephrolithiasis [Not Recovered/Not Resolved]
  - Dizziness [Unknown]
  - Nausea [Unknown]

NARRATIVE: CASE EVENT DATE: 20241116
